FAERS Safety Report 21734303 (Version 1)
Quarter: 2022Q4

REPORT INFORMATION
  Report Type: Spontaneous
  Country: US (occurrence: None)
  Receive Date: 20221214
  Receipt Date: 20221214
  Transmission Date: 20230112
  Serious: No
  Sender: FDA-Public Use
  Company Number: None

PATIENT
  Age: 14 Year
  Sex: Female
  Weight: 42.6 kg

DRUGS (1)
  1. EVEROLIMUS [Suspect]
     Active Substance: EVEROLIMUS
     Indication: Tuberous sclerosis complex
     Dosage: 5MG MON,WED, FRI ORAL?
     Route: 048
     Dates: start: 20221026

REACTIONS (2)
  - Product substitution issue [None]
  - Stomatitis [None]

NARRATIVE: CASE EVENT DATE: 20221212
